FAERS Safety Report 7964145 (Version 2)
Quarter: 2012Q4

REPORT INFORMATION
  Report Type: 
  Country: VE (occurrence: VE)
  Receive Date: 20110527
  Receipt Date: 20121231
  Transmission Date: 20130627
  Serious: Yes (Hospitalization)
  Sender: FDA-Public Use
  Company Number: PHHY2011VE41547

PATIENT
  Age: 61 Year
  Sex: Female

DRUGS (5)
  1. ACLASTA [Suspect]
     Indication: OSTEOPOROSIS
     Dosage: 5 mg/100 ml, yearly
     Route: 042
     Dates: start: 20100113
  2. BATANLO [Concomitant]
     Dosage: 500 mg, half dose at day
  3. CALCIBON D [Concomitant]
     Dosage: 300 mg, BID
  4. CERES [Concomitant]
     Dosage: 16 mg, SOS
  5. COZAAR [Concomitant]
     Indication: HYPERTENSION
     Dosage: 50 mg, ONCE/SINGLE
     Route: 048

REACTIONS (9)
  - Meniere^s disease [Recovered/Resolved]
  - Nausea [Recovered/Resolved]
  - Vertigo [Recovered/Resolved]
  - Dizziness [Recovered/Resolved]
  - Ear pain [Recovered/Resolved]
  - Labyrinthitis [Unknown]
  - Ear discomfort [Unknown]
  - Vomiting [Unknown]
  - Pyrexia [Unknown]
